FAERS Safety Report 13639738 (Version 1)
Quarter: 2017Q2

REPORT INFORMATION
  Report Type: Spontaneous
  Country: US (occurrence: US)
  Receive Date: 20170609
  Receipt Date: 20170609
  Transmission Date: 20170830
  Serious: No
  Sender: FDA-Public Use
  Company Number: US-ROCHE-658689

PATIENT
  Age: 48 Year
  Sex: Male
  Weight: 90.9 kg

DRUGS (11)
  1. KLONOPIN [Suspect]
     Active Substance: CLONAZEPAM
     Indication: ANXIETY
     Dosage: EVERY NIGHT BEFORE BEDTIME.
     Route: 065
  2. DEPAKOTE [Suspect]
     Active Substance: DIVALPROEX SODIUM
     Dosage: 500 MG EVERY MORNING AND 1500 EVERY NIGHT BEFORE BEDTIME. DOSAGE INCREASED.
     Route: 065
  3. PRAVASTATIN. [Concomitant]
     Active Substance: PRAVASTATIN
     Route: 065
  4. CHANTIX [Suspect]
     Active Substance: VARENICLINE TARTRATE
     Indication: SMOKING CESSATION THERAPY
     Dosage: FORM: FILM COATED TABLET.
     Route: 048
     Dates: start: 20071201, end: 20080101
  5. DEPAKOTE [Suspect]
     Active Substance: DIVALPROEX SODIUM
     Dosage: DOSAGE REDUCED.
     Route: 065
  6. LITHIUM. [Concomitant]
     Active Substance: LITHIUM
     Route: 065
  7. RANITIDINE. [Concomitant]
     Active Substance: RANITIDINE
     Route: 065
  8. DEPAKOTE [Suspect]
     Active Substance: DIVALPROEX SODIUM
     Indication: BIPOLAR DISORDER
     Dosage: 500 MG EVERY MORNING AND 1000 MG EVERY NIGHT PRIOR TO BEDTIME.
     Route: 065
  9. KLONOPIN [Suspect]
     Active Substance: CLONAZEPAM
     Dosage: EVERY NIGHT. REDUCED.
     Route: 065
  10. PAROXETINE. [Concomitant]
     Active Substance: PAROXETINE
     Route: 065
  11. FISH OIL [Concomitant]
     Active Substance: FISH OIL
     Route: 065

REACTIONS (4)
  - Low density lipoprotein increased [Unknown]
  - Stress [Not Recovered/Not Resolved]
  - Blood cholesterol increased [Unknown]
  - Somnolence [Recovering/Resolving]

NARRATIVE: CASE EVENT DATE: 200712
